FAERS Safety Report 7018379-3 (Version None)
Quarter: 2010Q3

REPORT INFORMATION
  Report Type: 
  Country: None (occurrence: None)
  Receive Date: 20100928
  Receipt Date: 20100916
  Transmission Date: 20110219
  Serious: Yes (Other)
  Sender: FDA-Public Use
  Company Number: PHHY2010US61779

PATIENT
  Sex: Female

DRUGS (13)
  1. RECLAST [Suspect]
     Indication: OSTEOPOROSIS
  2. FOSAMAX [Suspect]
     Indication: OSTEOPOROSIS
  3. EVISTA [Suspect]
     Indication: OSTEOPOROSIS
  4. ACTONEL [Suspect]
     Indication: OSTEOPOROSIS
  5. FORTEO [Suspect]
     Indication: OSTEOPOROSIS
  6. BONIVA [Suspect]
     Indication: OSTEOPOROSIS
  7. SYNTHROID [Concomitant]
  8. LOPRESSOR [Concomitant]
  9. CRESTOR [Concomitant]
  10. ASPIRIN [Concomitant]
  11. GLUCOSAMINE [Concomitant]
  12. CITRACAL [Concomitant]
  13. CENTRUM SILVER [Concomitant]

REACTIONS (7)
  - BLOOD PRESSURE INCREASED [None]
  - CHILLS [None]
  - GASTRIC PERFORATION [None]
  - OESOPHAGEAL PERFORATION [None]
  - PALPITATIONS [None]
  - PYREXIA [None]
  - TREMOR [None]
